FAERS Safety Report 8420248-9 (Version None)
Quarter: 2012Q2

REPORT INFORMATION
  Report Type: 
  Country: None (occurrence: None)
  Receive Date: 20120607
  Receipt Date: 20111202
  Transmission Date: 20120825
  Serious: Yes (Other)
  Sender: FDA-Public Use
  Company Number: PL-GILEAD-2011-0047469

PATIENT
  Age: 31 Year
  Sex: Female

DRUGS (4)
  1. VIREAD [Suspect]
     Indication: HIV INFECTION
  2. LAMIVUDINE (EPIVIR HBV) [Concomitant]
  3. METHADONE HCL [Concomitant]
  4. LOPINAVIR/RITONAVIR [Concomitant]

REACTIONS (1)
  - OSTEOPOROSIS [None]
